FAERS Safety Report 4305045-8 (Version None)
Quarter: 2004Q1

REPORT INFORMATION
  Report Type: 
  Country: None (occurrence: None)
  Receive Date: 20040223
  Receipt Date: 20031218
  Transmission Date: 20041129
  Serious: No
  Sender: FDA-Public Use
  Company Number: TAP2003Q02938

PATIENT
  Age: 66 Year
  Sex: Male

DRUGS (1)
  1. LUPRON DEPOT-4 [Suspect]
     Indication: PROSTATE CANCER
     Dosage: 30 MG, 1 IN 4 M, INTRAMUSCULAR
     Route: 030
     Dates: start: 20030814

REACTIONS (2)
  - INJECTION SITE ABSCESS [None]
  - INJECTION SITE INDURATION [None]
